FAERS Safety Report 8230444-1 (Version None)
Quarter: 2012Q1

REPORT INFORMATION
  Report Type: 
  Country: None (occurrence: None)
  Receive Date: 20120323
  Receipt Date: 20120316
  Transmission Date: 20120608
  Serious: Yes (Hospitalization)
  Sender: FDA-Public Use
  Company Number: US-BAYER-2011-107974

PATIENT
  Age: 21 Year
  Sex: Female
  Weight: 90.703 kg

DRUGS (7)
  1. BISMUTH SUBSALICYLATE [Concomitant]
  2. LEXAPRO [Concomitant]
     Dosage: 10 MG, QD
  3. CLARITIN [Concomitant]
     Dosage: 10 MG, QD
  4. YASMIN [Suspect]
     Indication: CONTRACEPTION
     Dosage: UNK
     Route: 048
     Dates: start: 20060126, end: 20080401
  5. ASPIRIN [Concomitant]
  6. ADVAIR DISKUS 100/50 [Concomitant]
     Dosage: UNK UNK, QD
  7. FLONASE [Concomitant]
     Dosage: UNK UNK, QD
     Route: 045

REACTIONS (7)
  - PAIN [None]
  - EMOTIONAL DISTRESS [None]
  - MENTAL DISORDER [None]
  - CHOLELITHIASIS [None]
  - CHOLECYSTITIS CHRONIC [None]
  - ANXIETY [None]
  - GENERAL PHYSICAL HEALTH DETERIORATION [None]
